FAERS Safety Report 19194346 (Version 1)
Quarter: 2021Q2

REPORT INFORMATION
  Report Type: Spontaneous
  Country: US (occurrence: US)
  Receive Date: 20210429
  Receipt Date: 20210429
  Transmission Date: 20210717
  Serious: No
  Sender: FDA-Public Use
  Company Number: None

PATIENT
  Age: 57 Year
  Sex: Female
  Weight: 54.6 kg

DRUGS (1)
  1. PACLITAXEL PROTEIN?BOUND PARTICLES (ALBUMIN?BOUND) [Suspect]
     Active Substance: PACLITAXEL
     Dates: end: 20210421

REACTIONS (2)
  - White blood cell count decreased [None]
  - Neutrophil count decreased [None]

NARRATIVE: CASE EVENT DATE: 20210427
